FAERS Safety Report 16643349 (Version 1)
Quarter: 2019Q3

REPORT INFORMATION
  Report Type: Spontaneous
  Country: US (occurrence: US)
  Receive Date: 20190729
  Receipt Date: 20190729
  Transmission Date: 20191004
  Serious: Yes (Hospitalization, Other)
  Sender: FDA-Public Use
  Company Number: US-PFIZER INC-2019318340

PATIENT
  Age: 63 Year
  Sex: Male
  Weight: 81 kg

DRUGS (6)
  1. ALIMTA [Suspect]
     Active Substance: PEMETREXED DISODIUM
     Dosage: UNK (CYCLE 2 DAY 1, RETURN TO CYCLE 2)
     Dates: start: 20190709
  2. CARBOPLATIN. [Suspect]
     Active Substance: CARBOPLATIN
     Indication: LUNG NEOPLASM MALIGNANT
     Dosage: UNK (1 CYCLE)
  3. KEYTRUDA [Suspect]
     Active Substance: PEMBROLIZUMAB
     Dosage: UNK (CYCLE 2 DAY 1, RETURN TO CYCLE 2)
     Dates: start: 20190709
  4. KEYTRUDA [Suspect]
     Active Substance: PEMBROLIZUMAB
     Indication: LUNG NEOPLASM MALIGNANT
     Dosage: UNK (1 CYCLE)
  5. CARBOPLATIN. [Suspect]
     Active Substance: CARBOPLATIN
     Dosage: UNK (CYCLE 2 DAY 1, RETURN TO CYCLE 2)
     Dates: start: 20190709
  6. ALIMTA [Suspect]
     Active Substance: PEMETREXED DISODIUM
     Indication: LUNG NEOPLASM MALIGNANT
     Dosage: UNK (1 CYCLE)

REACTIONS (1)
  - Cerebrovascular accident [Recovering/Resolving]
